FAERS Safety Report 8178556-5 (Version None)
Quarter: 2012Q1

REPORT INFORMATION
  Report Type: 
  Country: None (occurrence: None)
  Receive Date: 20120301
  Receipt Date: 20120221
  Transmission Date: 20120608
  Serious: Yes (Other)
  Sender: FDA-Public Use
  Company Number: KR-BAXTER-2012BH005296

PATIENT
  Age: 21 Year
  Sex: Female
  Weight: 67 kg

DRUGS (19)
  1. DIANEAL [Suspect]
     Indication: RENAL FAILURE CHRONIC
     Route: 033
     Dates: start: 20120124
  2. DIANEAL [Suspect]
     Route: 033
     Dates: start: 20110506
  3. SODIUM BICARBONATE [Concomitant]
     Indication: URINARY TRACT DISORDER
     Route: 048
     Dates: start: 20100312
  4. FERROUS SULFATE TAB [Concomitant]
     Indication: ANAEMIA
     Route: 048
     Dates: start: 20120111
  5. DIANEAL [Suspect]
     Route: 033
     Dates: start: 20110506
  6. CALCIUM ACETATE [Concomitant]
     Indication: HYPERPHOSPHATAEMIA
     Route: 048
     Dates: start: 20110622
  7. DIANEAL [Suspect]
     Indication: PERITONEAL DIALYSIS
     Route: 033
     Dates: start: 20120124
  8. DIANEAL [Suspect]
     Route: 033
     Dates: start: 20120124
  9. CALCITRIOL [Concomitant]
     Indication: VITAMIN D DEFICIENCY
     Route: 048
     Dates: start: 20111116
  10. AMLODIPINE [Concomitant]
     Indication: HYPERTENSION
     Route: 048
     Dates: start: 20100524
  11. RECORMON PS [Concomitant]
     Indication: ANAEMIA
     Route: 058
     Dates: start: 20111116
  12. DIANEAL [Suspect]
     Route: 033
     Dates: start: 20110506
  13. VITAMIN B-COMPLEX WITH VITAMIN C [Concomitant]
     Indication: VITAMIN SUPPLEMENTATION
     Route: 048
     Dates: start: 20110525
  14. EXTRANEAL [Suspect]
     Indication: PERITONEAL DIALYSIS
     Route: 033
     Dates: start: 20120124
  15. EXTRANEAL [Suspect]
     Indication: RENAL FAILURE CHRONIC
     Route: 033
     Dates: start: 20120124
  16. ENALAPRIL MALEATE [Concomitant]
     Indication: HYPERTENSION
     Route: 048
     Dates: start: 20080604
  17. FOLIC ACID [Concomitant]
     Indication: VITAMIN SUPPLEMENTATION
     Route: 048
     Dates: start: 20110516
  18. CRESTOR [Concomitant]
     Indication: HYPERLIPIDAEMIA
     Route: 048
     Dates: start: 20110921
  19. MOTILIUM-M [Concomitant]
     Indication: PRODUCT USED FOR UNKNOWN INDICATION
     Route: 048
     Dates: start: 20110307

REACTIONS (1)
  - EPISTAXIS [None]
